FAERS Safety Report 24852711 (Version 2)
Quarter: 2025Q1

REPORT INFORMATION
  Report Type: Spontaneous
  Country: US (occurrence: US)
  Receive Date: 20250116
  Receipt Date: 20250305
  Transmission Date: 20250408
  Serious: No
  Sender: INCYTE
  Company Number: US-EVENT-001079

PATIENT

DRUGS (1)
  1. OPZELURA [Suspect]
     Active Substance: RUXOLITINIB PHOSPHATE
     Indication: Dermatitis atopic
     Route: 065

REACTIONS (1)
  - Rash [Not Recovered/Not Resolved]
